FAERS Safety Report 10838785 (Version 1)
Quarter: 2015Q1

REPORT INFORMATION
  Report Type: Report from Study
  Country: US (occurrence: US)
  Receive Date: 20150219
  Receipt Date: 20150219
  Transmission Date: 20150721
  Serious: No
  Sender: FDA-Public Use
  Company Number: US-ABBVIE-14P-163-1228269-00

PATIENT
  Age: 41 Year
  Sex: Male

DRUGS (9)
  1. HUMIRA [Suspect]
     Active Substance: ADALIMUMAB
     Indication: PSORIASIS
     Dates: start: 20140212, end: 20140212
  2. HUMIRA [Suspect]
     Active Substance: ADALIMUMAB
     Dates: start: 20140306, end: 20140306
  3. HUMIRA [Suspect]
     Active Substance: ADALIMUMAB
     Dates: start: 20140318, end: 20140318
  4. HUMIRA [Suspect]
     Active Substance: ADALIMUMAB
     Dates: start: 20140408
  5. HUMIRA [Suspect]
     Active Substance: ADALIMUMAB
     Dates: start: 20140311, end: 20140311
  6. HUMIRA [Suspect]
     Active Substance: ADALIMUMAB
     Dates: start: 20140325, end: 20140325
  7. HUMIRA [Suspect]
     Active Substance: ADALIMUMAB
     Indication: PSORIASIS
     Dates: start: 20140205, end: 20140205
  8. HUMIRA [Suspect]
     Active Substance: ADALIMUMAB
     Dates: start: 20140401, end: 20140401
  9. TACLONEX [Concomitant]
     Active Substance: BETAMETHASONE DIPROPIONATE\CALCIPOTRIENE\CALCIPOTRIENE HYDRATE
     Indication: PRODUCT USED FOR UNKNOWN INDICATION

REACTIONS (2)
  - Drug ineffective [Unknown]
  - Inappropriate schedule of drug administration [Unknown]

NARRATIVE: CASE EVENT DATE: 20140205
